FAERS Safety Report 7793120-5 (Version None)
Quarter: 2011Q3

REPORT INFORMATION
  Report Type: 
  Country: None (occurrence: None)
  Receive Date: 20110929
  Receipt Date: 20110913
  Transmission Date: 20111222
  Serious: Yes (Hospitalization)
  Sender: FDA-Public Use
  Company Number: HYDR20110026

PATIENT

DRUGS (2)
  1. HYDROCORTISONE [Suspect]
     Indication: NEONATAL RESPIRATORY DISTRESS SYNDROME
     Dosage: 10 MG, 2 IN 1 D, INTRAVENOUS
     Route: 042
  2. HYDROCORTISONE [Suspect]
     Indication: LUNG DISORDER
     Dosage: 10 MG, 2 IN 1 D, INTRAVENOUS
     Route: 042

REACTIONS (1)
  - HYPERTROPHIC CARDIOMYOPATHY [None]
